FAERS Safety Report 12141859 (Version 1)
Quarter: 2016Q1

REPORT INFORMATION
  Report Type: Spontaneous
  Country: GB (occurrence: GB)
  Receive Date: 20160303
  Receipt Date: 20160303
  Transmission Date: 20160526
  Serious: Yes (Life-Threatening, Hospitalization)
  Sender: FDA-Public Use
  Company Number: GB-ASTRAZENECA-2016SE19687

PATIENT
  Age: 68 Year
  Sex: Male
  Weight: 90 kg

DRUGS (4)
  1. METFORMIN [Concomitant]
     Active Substance: METFORMIN HYDROCHLORIDE
  2. DAPAGLIFLOZIN [Suspect]
     Active Substance: DAPAGLIFLOZIN
     Indication: HYPERGLYCAEMIA
     Route: 048
     Dates: start: 20160126, end: 20160210
  3. SITAGLIPTIN [Concomitant]
     Active Substance: SITAGLIPTIN
  4. BETAHISTINE [Concomitant]
     Active Substance: BETAHISTINE

REACTIONS (1)
  - Diabetic ketoacidosis [Recovered/Resolved]

NARRATIVE: CASE EVENT DATE: 20160210
